FAERS Safety Report 16243348 (Version 2)
Quarter: 2019Q2

REPORT INFORMATION
  Report Type: Report from Study
  Country: US (occurrence: US)
  Receive Date: 20190426
  Receipt Date: 20190626
  Transmission Date: 20190711
  Serious: Yes (Hospitalization)
  Sender: FDA-Public Use
  Company Number: US-ROCHE-2307100

PATIENT
  Age: 66 Year
  Sex: Female
  Weight: 108.96 kg

DRUGS (31)
  1. OCREVUS [Suspect]
     Active Substance: OCRELIZUMAB
     Indication: PROGRESSIVE MULTIPLE SCLEROSIS
     Dosage: DATE OF TREATMENT 24/AUG/2018, 7/SEP/2018
     Route: 065
     Dates: start: 201810, end: 20190301
  2. TIZANIDINE. [Concomitant]
     Active Substance: TIZANIDINE
     Indication: OFF LABEL USE
     Route: 048
  3. BACLOFEN. [Concomitant]
     Active Substance: BACLOFEN
     Indication: OFF LABEL USE
     Route: 048
  4. METAXALONE. [Concomitant]
     Active Substance: METAXALONE
     Indication: OFF LABEL USE
     Route: 048
     Dates: start: 20150928
  5. CYCLOBENZAPRINE. [Concomitant]
     Active Substance: CYCLOBENZAPRINE
     Indication: OFF LABEL USE
     Route: 048
  6. CYMBALTA [Concomitant]
     Active Substance: DULOXETINE HYDROCHLORIDE
     Indication: OFF LABEL USE
     Route: 048
     Dates: start: 20160829
  7. KLOR-CON [Concomitant]
     Active Substance: POTASSIUM CHLORIDE
     Indication: OFF LABEL USE
  8. MIRALAX [Concomitant]
     Active Substance: POLYETHYLENE GLYCOL 3350
     Indication: OFF LABEL USE
     Dosage: 17G MIXED WITH 8 OZ, WATER JUICE, SODA, COFFEE
     Route: 048
  9. RITALIN [Concomitant]
     Active Substance: METHYLPHENIDATE HYDROCHLORIDE
     Indication: OFF LABEL USE
     Route: 048
  10. OCREVUS [Suspect]
     Active Substance: OCRELIZUMAB
     Indication: OFF LABEL USE
  11. CARVEDILOL. [Concomitant]
     Active Substance: CARVEDILOL
     Indication: OFF LABEL USE
     Route: 065
  12. MORPHINE [Concomitant]
     Active Substance: MORPHINE
     Indication: OFF LABEL USE
     Route: 048
  13. LOSARTAN. [Concomitant]
     Active Substance: LOSARTAN
     Indication: OFF LABEL USE
  14. CARVEDILOL. [Concomitant]
     Active Substance: CARVEDILOL
     Route: 048
     Dates: start: 20150708
  15. ADDERALL [Concomitant]
     Active Substance: AMPHETAMINE ASPARTATE\AMPHETAMINE SULFATE\DEXTROAMPHETAMINE SACCHARATE\DEXTROAMPHETAMINE SULFATE
     Indication: OFF LABEL USE
     Route: 065
  16. ASPIRIN [ACETYLSALICYLIC ACID] [Concomitant]
     Active Substance: ASPIRIN
     Indication: OFF LABEL USE
     Route: 048
  17. LASIX [Concomitant]
     Active Substance: FUROSEMIDE
     Indication: OFF LABEL USE
     Route: 048
  18. DULOXETINE. [Concomitant]
     Active Substance: DULOXETINE
     Indication: OFF LABEL USE
     Route: 065
  19. BOTOX [Concomitant]
     Active Substance: ONABOTULINUMTOXINA
     Indication: OFF LABEL USE
     Dosage: 200 UNITS EVRERY 8-12 WEEKS
     Route: 065
     Dates: start: 20170511
  20. CELEBREX [Concomitant]
     Active Substance: CELECOXIB
     Indication: OFF LABEL USE
     Route: 048
  21. LYRICA [Concomitant]
     Active Substance: PREGABALIN
     Indication: OFF LABEL USE
     Route: 048
  22. SKELAXIN [METAXALONE] [Concomitant]
     Indication: OFF LABEL USE
     Route: 048
     Dates: start: 20170123
  23. AMLODIPINE [Concomitant]
     Active Substance: AMLODIPINE BESYLATE
     Indication: OFF LABEL USE
     Route: 065
  24. FOSAMAX [Concomitant]
     Active Substance: ALENDRONATE SODIUM
     Indication: OFF LABEL USE
     Route: 048
  25. MACROBID [Concomitant]
     Active Substance: NITROFURANTOIN\NITROFURANTOIN MONOHYDRATE
     Indication: OFF LABEL USE
     Route: 048
  26. TYLENOL [Concomitant]
     Active Substance: ACETAMINOPHEN
     Indication: OFF LABEL USE
     Route: 048
  27. GABAPENTIN. [Concomitant]
     Active Substance: GABAPENTIN
     Indication: OFF LABEL USE
     Route: 048
     Dates: start: 20170206
  28. CYMBALTA [Concomitant]
     Active Substance: DULOXETINE HYDROCHLORIDE
     Route: 048
     Dates: start: 20130313
  29. FIBERCON [Concomitant]
     Active Substance: CALCIUM POLYCARBOPHIL
     Indication: OFF LABEL USE
     Route: 048
  30. WELLBUTRIN [Concomitant]
     Active Substance: BUPROPION HYDROCHLORIDE
     Indication: OFF LABEL USE
     Route: 048
     Dates: start: 20140306
  31. VALIUM [Concomitant]
     Active Substance: DIAZEPAM
     Indication: OFF LABEL USE
     Route: 048

REACTIONS (6)
  - Respiratory tract infection bacterial [Recovered/Resolved]
  - Dyspnoea [Recovered/Resolved]
  - Immunosuppression [Unknown]
  - Bronchitis [Recovered/Resolved]
  - Off label use [Unknown]
  - Intentional product use issue [Unknown]

NARRATIVE: CASE EVENT DATE: 201903
